FAERS Safety Report 5654275-1 (Version None)
Quarter: 2008Q1

REPORT INFORMATION
  Report Type: 
  Country: None (occurrence: None)
  Receive Date: 20080306
  Receipt Date: 20080225
  Transmission Date: 20080703
  Serious: Yes (Other)
  Sender: FDA-Public Use
  Company Number: CH-ABBOTT-08P-151-0439675-00

PATIENT
  Age: 49 Year
  Sex: Female

DRUGS (8)
  1. KALETRA [Suspect]
     Indication: HIV INFECTION
     Dates: start: 20070416, end: 20080128
  2. LAMIVUDINE [Suspect]
     Indication: HIV INFECTION
     Dates: end: 20070301
  3. LAMIVUDINE [Suspect]
     Dates: start: 20070416, end: 20070426
  4. LAMIVUDINE [Suspect]
     Dates: start: 20070502, end: 20070509
  5. LAMIVUDINE [Suspect]
     Dates: start: 20080128
  6. TENOFOVIR [Suspect]
     Indication: HIV INFECTION
     Dates: end: 20070301
  7. TENOFOVIR [Suspect]
     Dates: start: 20070420, end: 20070426
  8. LAMIVUDINE + ZIDOVUDINE [Suspect]
     Indication: HIV INFECTION
     Dates: start: 20070509, end: 20070513

REACTIONS (3)
  - GASTROINTESTINAL DISORDER [None]
  - RASH [None]
  - XANTHELASMA [None]
